FAERS Safety Report 4323959-X (Version None)
Quarter: 2004Q1

REPORT INFORMATION
  Report Type: 
  Country: None (occurrence: None)
  Receive Date: 20040326
  Receipt Date: 20031201
  Transmission Date: 20041129
  Serious: No
  Sender: FDA-Public Use
  Company Number: US-GLAXOSMITHKLINE-A0441434A

PATIENT
  Age: 61 Year
  Sex: Female

DRUGS (21)
  1. ADVAIR DISKUS 100/50 [Suspect]
     Indication: ASTHMA
     Dosage: 1PUFF TWICE PER DAY
     Route: 055
     Dates: start: 20031015
  2. ALBUTEROL [Concomitant]
  3. ALTACE [Concomitant]
     Dosage: 10MG UNKNOWN
     Route: 065
  4. TRIAMCINOLONE [Concomitant]
     Route: 065
  5. FOLIC ACID [Concomitant]
  6. ZOCOR [Concomitant]
  7. MIRALAX [Concomitant]
  8. NEURONTIN [Concomitant]
  9. PLAVIX [Concomitant]
  10. PREMARIN [Concomitant]
  11. PROTONIX [Concomitant]
  12. PROMETRIUM [Concomitant]
  13. TEGRETOL [Concomitant]
  14. VICODIN [Concomitant]
  15. CALCIUM/MAGNESIUM/ZINC [Concomitant]
  16. ASPIRIN [Concomitant]
  17. NIACIN [Concomitant]
  18. B-50 COMPLEX [Concomitant]
  19. VITAMIN C [Concomitant]
  20. VITAMIN E [Concomitant]
  21. HYDROCHLOROTHIAZIDE [Concomitant]
     Route: 065

REACTIONS (1)
  - ORAL CANDIDIASIS [None]
